FAERS Safety Report 11391859 (Version 2)
Quarter: 2015Q3

REPORT INFORMATION
  Report Type: Other
  Country: IT (occurrence: IT)
  Receive Date: 20150818
  Receipt Date: 20150824
  Transmission Date: 20151125
  Serious: Yes (Hospitalization)
  Sender: FDA-Public Use
  Company Number: IT-MYLANLABS-2015M1027506

PATIENT

DRUGS (4)
  1. FLUOXETINA SANDOZ [Suspect]
     Active Substance: FLUOXETINE HYDROCHLORIDE
     Indication: DEPRESSION
     Dosage: 3 DF, TOTAL
     Route: 048
     Dates: start: 20150203
  2. TRITTICO [Concomitant]
     Active Substance: TRAZODONE HYDROCHLORIDE
     Indication: ANXIETY
     Dosage: 1 DF
  3. QUETIAPINA MYLAN GENERICS [Suspect]
     Active Substance: QUETIAPINE
     Indication: PRODUCT USED FOR UNKNOWN INDICATION
     Dosage: 5 DF, TOTAL
     Route: 048
     Dates: start: 20150203
  4. RIVOTRIL [Suspect]
     Active Substance: CLONAZEPAM
     Indication: ANXIETY
     Dosage: 7 DF, TOTAL
     Route: 048
     Dates: start: 20150203

REACTIONS (4)
  - Sopor [Recovered/Resolved]
  - Coma scale abnormal [Recovered/Resolved]
  - Overdose [Recovered/Resolved]
  - Antipsychotic drug level above therapeutic [Unknown]

NARRATIVE: CASE EVENT DATE: 20150203
